FAERS Safety Report 7867909-8 (Version None)
Quarter: 2011Q4

REPORT INFORMATION
  Report Type: 
  Country: None (occurrence: None)
  Receive Date: 20111028
  Receipt Date: 20111018
  Transmission Date: 20120403
  Serious: Yes (Other)
  Sender: FDA-Public Use
  Company Number: PHHY2011GB91861

PATIENT
  Age: 65 Year
  Sex: Male
  Weight: 74 kg

DRUGS (9)
  1. FYBOGEL [Concomitant]
     Dosage: UNK
  2. GABAPENTIN [Concomitant]
     Dosage: UNK
  3. OMEPRAZOLE [Suspect]
     Indication: DYSPEPSIA
     Dosage: 20 MG, QD
     Route: 048
     Dates: start: 20110801, end: 20110810
  4. CODEINE SULFATE [Concomitant]
     Dosage: UNK
  5. DICLOFENAC POTASSIUM [Suspect]
     Indication: ARTHRITIS
     Dosage: 150 MG, QD
     Route: 048
     Dates: start: 20110801, end: 20110810
  6. ACETAMINOPHEN [Concomitant]
     Dosage: UNK
  7. CITALOPRAM HYDROBROMIDE [Concomitant]
     Indication: ANXIETY
     Dosage: 20 MG, QD
     Route: 048
  8. MOVIPREP [Concomitant]
     Dosage: UNK
  9. NORTRIPTYLINE HCL [Concomitant]
     Dosage: UNK

REACTIONS (3)
  - SERUM FERRITIN ABNORMAL [None]
  - BLOOD IRON ABNORMAL [None]
  - VITAMIN B12 DECREASED [None]
